FAERS Safety Report 10041301 (Version 1)
Quarter: 2014Q1

REPORT INFORMATION
  Report Type: Spontaneous
  Country: US (occurrence: None)
  Receive Date: 20140325
  Receipt Date: 20140325
  Transmission Date: 20141002
  Serious: Yes (Death, Other)
  Sender: FDA-Public Use
  Company Number: AUR-APL-2014-03356

PATIENT
  Age: 53 Year
  Sex: Female

DRUGS (4)
  1. HYDROCODONE+PARACETAMOL (PARACETAMOL, HYDROCODONE) [Suspect]
     Indication: PRODUCT USED FOR UNKNOWN INDICATION
     Dosage: ORAL
     Route: 048
  2. ETHANOL [Suspect]
     Dosage: UNKNOWN
  3. HYDROCHLOROTHIAZIDE/ENALAPRIL [Suspect]
     Dosage: UNKNOWN
  4. ACETAMINOPHEN (PARACETAMOL) [Suspect]
     Dosage: UNKNOWN

REACTIONS (6)
  - Poisoning [None]
  - Completed suicide [None]
  - Exposure via ingestion [None]
  - Cardiac arrest [None]
  - Respiratory arrest [None]
  - Alcohol use [None]
